FAERS Safety Report 17398775 (Version 3)
Quarter: 2020Q2

REPORT INFORMATION
  Report Type: Spontaneous
  Country: US (occurrence: US)
  Receive Date: 20200210
  Receipt Date: 20200519
  Transmission Date: 20200713
  Serious: No
  Sender: FDA-Public Use
  Company Number: US-PFIZER INC-2020059474

PATIENT
  Age: 60 Year
  Sex: Female

DRUGS (2)
  1. ALPRAZOLAM. [Suspect]
     Active Substance: ALPRAZOLAM
     Indication: AGORAPHOBIA
  2. ALPRAZOLAM. [Suspect]
     Active Substance: ALPRAZOLAM
     Indication: PANIC DISORDER
     Dosage: UNK

REACTIONS (4)
  - Headache [Unknown]
  - Abdominal discomfort [Unknown]
  - Apathy [Unknown]
  - Therapeutic product effect incomplete [Unknown]
